FAERS Safety Report 6308205-X (Version None)
Quarter: 2009Q3

REPORT INFORMATION
  Report Type: 
  Country: None (occurrence: None)
  Receive Date: 20090810
  Receipt Date: 20090730
  Transmission Date: 20100115
  Serious: Yes (Other)
  Sender: FDA-Public Use
  Company Number: DSA_34119_2009

PATIENT
  Sex: Female

DRUGS (10)
  1. ATIVAN [Suspect]
     Indication: INSOMNIA
     Dosage: (1 MG, AS REQUIRED)
  2. REBIF [Suspect]
     Indication: MULTIPLE SCLEROSIS RELAPSE
     Dosage: (44 ?G 3X/WEEK SUBCUTANEOUS)
     Route: 058
     Dates: start: 20080908
  3. BACLOFEN [Suspect]
     Indication: MUSCLE SPASMS
     Dosage: (10 AS NEEDED)
  4. NEURONTIN [Suspect]
     Indication: DRUG USE FOR UNKNOWN INDICATION
  5. NALTREXONE HYDROCHLORIDE [Suspect]
     Indication: DRUG USE FOR UNKNOWN INDICATION
  6. ZONISAMIDE [Suspect]
     Indication: DRUG USE FOR UNKNOWN INDICATION
  7. IBUPROFEN [Concomitant]
  8. FLEXERIL [Concomitant]
  9. ZOLOFT /01011402/ [Concomitant]
  10. VICODIN [Concomitant]

REACTIONS (1)
  - ANGLE CLOSURE GLAUCOMA [None]
